FAERS Safety Report 11128037 (Version 1)
Quarter: 2015Q2

REPORT INFORMATION
  Report Type: Spontaneous
  Country: US (occurrence: None)
  Receive Date: 20150520
  Receipt Date: 20150520
  Transmission Date: 20150821
  Serious: Yes (Life-Threatening, Hospitalization)
  Sender: FDA-Public Use
  Company Number: None

PATIENT
  Age: 87 Year
  Sex: Female
  Weight: 58.97 kg

DRUGS (8)
  1. TRAMADOL [Concomitant]
     Active Substance: TRAMADOL
  2. ZOFRAN [Concomitant]
     Active Substance: ONDANSETRON HYDROCHLORIDE
  3. BENTYL [Concomitant]
     Active Substance: DICYCLOMINE HYDROCHLORIDE
  4. TAXOTERE [Suspect]
     Active Substance: DOCETAXEL
     Indication: LUNG NEOPLASM MALIGNANT
     Dosage: EVERY 3 WEEKS ?INTRAVENOUS
     Route: 042
     Dates: start: 20140919, end: 20150203
  5. ALLOPURINAL [Concomitant]
  6. CHOLESTYRAMINE. [Concomitant]
     Active Substance: CHOLESTYRAMINE
  7. NEURONTIN [Concomitant]
     Active Substance: GABAPENTIN
  8. COUMADIN [Concomitant]
     Active Substance: WARFARIN SODIUM

REACTIONS (7)
  - Performance status decreased [None]
  - Dehydration [None]
  - Diverticular perforation [None]
  - Orthostatic hypotension [None]
  - Abscess [None]
  - Post procedural complication [None]
  - Respiratory failure [None]

NARRATIVE: CASE EVENT DATE: 20150406
